FAERS Safety Report 7455484 (Version 3)
Quarter: 2016Q2

REPORT INFORMATION
  Report Type: Spontaneous
  Country: IE (occurrence: IE)
  Receive Date: 20100707
  Receipt Date: 20160419
  Transmission Date: 20160815
  Serious: Yes (Other)
  Sender: FDA-Public Use
  Company Number: IE-BAYER-201030404GPV

PATIENT
  Sex: Female

DRUGS (2)
  1. MIRENA [Suspect]
     Active Substance: LEVONORGESTREL
     Dosage: 20 ?G (DAILY DOSE), CONT, TRANSPLACENTAL
     Route: 064
     Dates: start: 20091005, end: 200910
  2. MIRENA [Suspect]
     Active Substance: LEVONORGESTREL
     Dosage: 20 ?G (DAILY DOSE), CONT, TRANSPLACENTAL
     Route: 064
     Dates: start: 20091005, end: 200910

REACTIONS (2)
  - Sepsis neonatal [Recovered/Resolved]
  - Premature baby [Recovered/Resolved]
